FAERS Safety Report 26044675 (Version 2)
Quarter: 2025Q4

REPORT INFORMATION
  Report Type: Spontaneous
  Country: US (occurrence: US)
  Receive Date: 20251114
  Receipt Date: 20251128
  Transmission Date: 20260117
  Serious: Yes (Hospitalization)
  Sender: CSL BEHRING
  Company Number: US-BEH-2025225268

PATIENT
  Age: 56 Year
  Sex: Female

DRUGS (1)
  1. VELTASSA [Suspect]
     Active Substance: PATIROMER
     Indication: Hyperkalaemia
     Dosage: 8.4 G PER SCRIPT, 1 PACKET ONCE A DAY
     Route: 048
     Dates: start: 20250912

REACTIONS (2)
  - Small intestinal anastomosis [Unknown]
  - Aortic disorder [Unknown]

NARRATIVE: CASE EVENT DATE: 20251031
